FAERS Safety Report 6063005-3 (Version None)
Quarter: 2009Q1

REPORT INFORMATION
  Report Type: 
  Country: None (occurrence: None)
  Receive Date: 20090203
  Receipt Date: 20090130
  Transmission Date: 20090719
  Serious: Yes (Hospitalization)
  Sender: FDA-Public Use
  Company Number: US-BRISTOL-MYERS SQUIBB COMPANY-14484216

PATIENT
  Age: 73 Year
  Sex: Female
  Weight: 57 kg

DRUGS (1)
  1. ORENCIA [Suspect]
     Indication: RHEUMATOID ARTHRITIS
     Dosage: THERAPY INITIATED ON OCTOBER 2008
     Dates: start: 20090105

REACTIONS (1)
  - INTERSTITIAL LUNG DISEASE [None]
